FAERS Safety Report 23942880 (Version 1)
Quarter: 2024Q2

REPORT INFORMATION
  Report Type: Spontaneous
  Country: NL (occurrence: NL)
  Receive Date: 20240605
  Receipt Date: 20240605
  Transmission Date: 20240716
  Serious: Yes (Life-Threatening, Hospitalization)
  Sender: FDA-Public Use
  Company Number: None

PATIENT
  Age: 73 Year
  Sex: Male
  Weight: 67.9 kg

DRUGS (1)
  1. SUNITINIB MALATE [Suspect]
     Active Substance: SUNITINIB MALATE
     Indication: Chromophobe renal cell carcinoma
     Dosage: 37.5 MG, 1X/DAY
     Dates: start: 20240515, end: 20240517

REACTIONS (1)
  - Ventricular fibrillation [Recovering/Resolving]
